FAERS Safety Report 11087541 (Version 2)
Quarter: 2015Q2

REPORT INFORMATION
  Report Type: Spontaneous
  Country: DE (occurrence: DE)
  Receive Date: 20150504
  Receipt Date: 20150511
  Transmission Date: 20150821
  Serious: No
  Sender: FDA-Public Use
  Company Number: DE-INCYTE CORPORATION-2015IN001841

PATIENT
  Sex: Male

DRUGS (4)
  1. MIRTAZAPINE. [Concomitant]
     Active Substance: MIRTAZAPINE
     Indication: PRODUCT USED FOR UNKNOWN INDICATION
     Dosage: UNKNWON
  2. JAKAFI [Suspect]
     Active Substance: RUXOLITINIB
     Dosage: 15 MG, QD IN MORNING
     Route: 065
  3. MIRTAZAPINE. [Concomitant]
     Active Substance: MIRTAZAPINE
     Route: 065
  4. JAKAFI [Suspect]
     Active Substance: RUXOLITINIB
     Indication: PRODUCT USED FOR UNKNOWN INDICATION
     Dosage: 15 MG, BID
     Route: 065
     Dates: start: 201412

REACTIONS (8)
  - Nasopharyngitis [Recovering/Resolving]
  - White blood cell count increased [Unknown]
  - Sleep disorder [Recovering/Resolving]
  - Irritable bowel syndrome [Recovering/Resolving]
  - Flatulence [Recovering/Resolving]
  - Haemoglobin decreased [Unknown]
  - Abdominal pain [Recovering/Resolving]
  - Tooth loss [Recovering/Resolving]
